FAERS Safety Report 6565865-6 (Version None)
Quarter: 2010Q1

REPORT INFORMATION
  Report Type: 
  Country: None (occurrence: None)
  Receive Date: 20100126
  Receipt Date: 20100120
  Transmission Date: 20100710
  Serious: Yes (Death, Hospitalization)
  Sender: FDA-Public Use
  Company Number: 2009SP040743

PATIENT
  Age: 48 Year
  Sex: Female

DRUGS (1)
  1. TEMODAR [Suspect]
     Indication: GLIOBLASTOMA
     Dosage: 140 MG;QD
     Dates: start: 20091101, end: 20091202

REACTIONS (16)
  - ANAEMIA [None]
  - ASPIRATION [None]
  - BLOOD ALBUMIN DECREASED [None]
  - BLOOD GLUCOSE INCREASED [None]
  - CONVULSION [None]
  - GLIOBLASTOMA [None]
  - HEPATIC FAILURE [None]
  - HYPOMAGNESAEMIA [None]
  - HYPOTENSION [None]
  - LACTIC ACIDOSIS [None]
  - MALIGNANT NEOPLASM PROGRESSION [None]
  - NAUSEA [None]
  - OEDEMA PERIPHERAL [None]
  - RENAL FAILURE [None]
  - SEPSIS [None]
  - UPPER GASTROINTESTINAL HAEMORRHAGE [None]
